FAERS Safety Report 15806104 (Version 1)
Quarter: 2019Q1

REPORT INFORMATION
  Report Type: Spontaneous
  Country: US (occurrence: US)
  Receive Date: 20190109
  Receipt Date: 20190109
  Transmission Date: 20190417
  Serious: Yes (Hospitalization)
  Sender: FDA-Public Use
  Company Number: None

PATIENT
  Age: 93 Year
  Sex: Female
  Weight: 88.6 kg

DRUGS (1)
  1. DABIGATRAN [Suspect]
     Active Substance: DABIGATRAN
     Route: 048

REACTIONS (5)
  - Upper gastrointestinal haemorrhage [None]
  - Vomiting [None]
  - Respiratory distress [None]
  - Nausea [None]
  - Haematemesis [None]

NARRATIVE: CASE EVENT DATE: 20181201
